FAERS Safety Report 15820085 (Version 5)
Quarter: 2023Q1

REPORT INFORMATION
  Report Type: Spontaneous
  Country: PT (occurrence: PT)
  Receive Date: 20190114
  Receipt Date: 20230222
  Transmission Date: 20230418
  Serious: Yes (Hospitalization, Other)
  Sender: FDA-Public Use
  Company Number: PHHY2019PT004316

PATIENT
  Age: 57 Year
  Sex: Male

DRUGS (9)
  1. AMOXICILLIN\CLAVULANATE POTASSIUM [Suspect]
     Active Substance: AMOXICILLIN\CLAVULANATE POTASSIUM
     Indication: Klebsiella infection
     Dosage: 1200 MG, Q8H
     Route: 042
     Dates: start: 20170717, end: 20170727
  2. CLARITHROMYCIN [Suspect]
     Active Substance: CLARITHROMYCIN
     Indication: Klebsiella infection
     Dosage: 500 MG, BID
     Route: 065
     Dates: start: 20170718, end: 20170721
  3. CLARITHROMYCIN [Suspect]
     Active Substance: CLARITHROMYCIN
     Indication: Pneumonia klebsiella
  4. GENTAMICIN [Concomitant]
     Active Substance: GENTAMICIN
     Indication: Product used for unknown indication
     Dosage: 240 MG, QD
     Route: 065
     Dates: start: 20170724, end: 20170817
  5. ENOXAPARIN [Concomitant]
     Active Substance: ENOXAPARIN
     Indication: Product used for unknown indication
     Dosage: 40 MG, ONCE/SINGLE
     Route: 058
  6. ALPRAZOLAM [Concomitant]
     Active Substance: ALPRAZOLAM
     Indication: Product used for unknown indication
     Dosage: 0.25 MG, QD (AT BEDTIME)
     Route: 048
     Dates: start: 20170721, end: 20170818
  7. METAMIZOLE [Concomitant]
     Active Substance: METAMIZOLE
     Indication: Product used for unknown indication
     Dosage: 575 MG, Q8H
     Route: 048
     Dates: start: 20170724, end: 20180818
  8. POTASSIUM CHLORIDE [Concomitant]
     Active Substance: POTASSIUM CHLORIDE
     Indication: Product used for unknown indication
     Dosage: 40 MEQ, QD
     Route: 065
     Dates: start: 20170721, end: 20170724
  9. ESOMEPRAZOLE [Concomitant]
     Active Substance: ESOMEPRAZOLE
     Indication: Product used for unknown indication
     Dosage: 20 MG
     Route: 048
     Dates: start: 20170707, end: 20170719

REACTIONS (6)
  - Pyrexia [Unknown]
  - Haemoptysis [Unknown]
  - Chest pain [Unknown]
  - Infectious pleural effusion [Unknown]
  - Drug ineffective [Unknown]
  - Klebsiella infection [Unknown]
